FAERS Safety Report 5192044-X (Version None)
Quarter: 2006Q4

REPORT INFORMATION
  Report Type: 
  Country: None (occurrence: None)
  Receive Date: 20061227
  Receipt Date: 20061213
  Transmission Date: 20070319
  Serious: Yes (Hospitalization)
  Sender: FDA-Public Use
  Company Number: US-BRISTOL-MYERS SQUIBB COMPANY-13619853

PATIENT
  Age: 69 Year
  Sex: Male

DRUGS (2)
  1. PRINIVIL [Suspect]
     Route: 048
     Dates: start: 20040914, end: 20050125
  2. IRBESARTAN [Suspect]
     Indication: HYPERTENSION
     Route: 048
     Dates: start: 20041221, end: 20050125

REACTIONS (1)
  - SWOLLEN TONGUE [None]
